FAERS Safety Report 10742275 (Version 1)
Quarter: 2015Q1

REPORT INFORMATION
  Report Type: Spontaneous
  Country: US (occurrence: None)
  Receive Date: 20150123
  Receipt Date: 20150123
  Transmission Date: 20150721
  Serious: No
  Sender: FDA-Public Use
  Company Number: None

PATIENT
  Age: 49 Year
  Sex: Female
  Weight: 68.04 kg

DRUGS (2)
  1. OXYBUTIN [Suspect]
     Active Substance: OXYBUTYNIN
     Indication: NEPHROLITHIASIS
     Route: 048
     Dates: start: 20101113, end: 20101114
  2. OXYBUTIN [Suspect]
     Active Substance: OXYBUTYNIN
     Indication: STENT PLACEMENT
     Route: 048
     Dates: start: 20101113, end: 20101114

REACTIONS (1)
  - Hypersensitivity [None]

NARRATIVE: CASE EVENT DATE: 20101113
